FAERS Safety Report 13199690 (Version 3)
Quarter: 2017Q4

REPORT INFORMATION
  Report Type: Spontaneous
  Country: US (occurrence: US)
  Receive Date: 20170208
  Receipt Date: 20171114
  Transmission Date: 20180320
  Serious: Yes (Other)
  Sender: FDA-Public Use
  Company Number: US-VERTEX PHARMACEUTICALS-2017-000682

PATIENT
  Age: 35 Year
  Sex: Female

DRUGS (16)
  1. COLISTIMETHATE [Concomitant]
     Active Substance: COLISTIMETHATE SODIUM
  2. PULMOZYME [Concomitant]
     Active Substance: DORNASE ALFA
  3. MEPHYTON [Concomitant]
     Active Substance: PHYTONADIONE
  4. BETHKIS [Concomitant]
     Active Substance: TOBRAMYCIN
     Dosage: UNK
  5. AQUADEKS [Concomitant]
     Active Substance: MINERALS\VITAMINS
     Route: 048
  6. VITAMIN E [Concomitant]
     Active Substance: .ALPHA.-TOCOPHEROL
  7. ORKAMBI [Suspect]
     Active Substance: IVACAFTOR\LUMACAFTOR
     Indication: CYSTIC FIBROSIS
     Dosage: 2 TABS (200/125 MG EACH), BID
     Route: 048
     Dates: start: 20150911, end: 20170120
  8. ORKAMBI [Suspect]
     Active Substance: IVACAFTOR\LUMACAFTOR
     Dosage: 2 TABS (200/ 125 MG EACH), BID
     Route: 048
     Dates: start: 201703, end: 2017
  9. AZITHROMYCIN ANHYDROUS. [Concomitant]
     Active Substance: AZITHROMYCIN ANHYDROUS
  10. VITAMIN D2 [Concomitant]
     Active Substance: ERGOCALCIFEROL
  11. SYMBICORT [Concomitant]
     Active Substance: BUDESONIDE\FORMOTEROL FUMARATE DIHYDRATE
  12. VITAMIN A [Concomitant]
     Active Substance: VITAMIN A
  13. MEDROXYPROGESTERON [Concomitant]
  14. CREON [Concomitant]
     Active Substance: PANCRELIPASE AMYLASE\PANCRELIPASE LIPASE\PANCRELIPASE PROTEASE
  15. VENTOLIN [Concomitant]
     Active Substance: ALBUTEROL SULFATE
  16. POLYETHYLENE GLYCOL [Concomitant]
     Active Substance: POLYETHYLENE GLYCOLS

REACTIONS (3)
  - Chest discomfort [Not Recovered/Not Resolved]
  - Chest pain [Not Recovered/Not Resolved]
  - Dyspnoea [Not Recovered/Not Resolved]

NARRATIVE: CASE EVENT DATE: 201701
